FAERS Safety Report 7324190-6 (Version None)
Quarter: 2011Q1

REPORT INFORMATION
  Report Type: 
  Country: None (occurrence: None)
  Receive Date: 20110301
  Receipt Date: 20110221
  Transmission Date: 20110831
  Serious: Yes (Hospitalization)
  Sender: FDA-Public Use
  Company Number: US-B.I. PHARMACEUTICALS,INC./RIDGEFIELD-2010-BP-14737BP

PATIENT
  Age: 75 Year
  Sex: Male
  Weight: 96.62 kg

DRUGS (2)
  1. COUMADIN [Concomitant]
     Dosage: 2.5 MG
     Dates: start: 20080313
  2. PRADAXA [Suspect]
     Indication: ATRIAL FIBRILLATION
     Dosage: 300 MG
     Dates: start: 20101129, end: 20101206

REACTIONS (3)
  - RECTAL HAEMORRHAGE [None]
  - LOWER GASTROINTESTINAL HAEMORRHAGE [None]
  - HAEMATOCHEZIA [None]
